FAERS Safety Report 7786453-X (Version None)
Quarter: 2011Q3

REPORT INFORMATION
  Report Type: 
  Country: None (occurrence: None)
  Receive Date: 20110929
  Receipt Date: 20110914
  Transmission Date: 20111222
  Serious: Yes (Hospitalization, Other)
  Sender: FDA-Public Use
  Company Number: DE-ARROW GEN-2011-14659

PATIENT
  Sex: Male
  Weight: 3.42 kg

DRUGS (2)
  1. CITALOPRAM HYDROBROMIDE [Suspect]
     Indication: DEPRESSION
     Dosage: 40 MG, DAILY - REDUCED TO 30 MG DAILY (DATE UNKNOWN)
     Route: 064
     Dates: start: 20100828, end: 20110610
  2. FOLIC ACID [Concomitant]
     Indication: PROPHYLAXIS OF NEURAL TUBE DEFECT
     Dosage: UNK
     Route: 064

REACTIONS (1)
  - CONVULSION NEONATAL [None]
